FAERS Safety Report 6116597-X (Version None)
Quarter: 2009Q1

REPORT INFORMATION
  Report Type: 
  Country: None (occurrence: None)
  Receive Date: 20090314
  Receipt Date: 20081216
  Transmission Date: 20090719
  Serious: No
  Sender: FDA-Public Use
  Company Number: US-ABBOTT-08P-163-0493351-00

PATIENT
  Sex: Female
  Weight: 122.13 kg

DRUGS (1)
  1. HUMIRA [Suspect]
     Indication: PSORIASIS
     Dates: start: 20070801

REACTIONS (2)
  - PAPILLOMA VIRAL INFECTION [None]
  - SMEAR CERVIX ABNORMAL [None]
